FAERS Safety Report 7925073-0 (Version None)
Quarter: 2011Q4

REPORT INFORMATION
  Report Type: 
  Country: None (occurrence: None)
  Receive Date: 20111118
  Receipt Date: 20110331
  Transmission Date: 20120403
  Serious: No
  Sender: FDA-Public Use
  Company Number: US-AMGEN-USASP2011017484

PATIENT
  Age: 45 Year
  Sex: Female

DRUGS (2)
  1. ENBREL [Suspect]
     Indication: FIBROMYALGIA
     Dosage: 50 MG, 2 TIMES/WK
     Dates: start: 20110315
  2. ENBREL [Suspect]
     Indication: PSORIATIC ARTHROPATHY

REACTIONS (4)
  - HYPOAESTHESIA [None]
  - HEADACHE [None]
  - HYPOAESTHESIA ORAL [None]
  - SENSATION OF HEAVINESS [None]
